FAERS Safety Report 8532556-1 (Version None)
Quarter: 2012Q3

REPORT INFORMATION
  Report Type: 
  Country: None (occurrence: None)
  Receive Date: 20120724
  Receipt Date: 20120719
  Transmission Date: 20120928
  Serious: No
  Sender: FDA-Public Use
  Company Number: US-PFIZER INC-2012146675

PATIENT
  Sex: Female
  Weight: 64 kg

DRUGS (1)
  1. FLECTOR [Suspect]
     Indication: ARTHRALGIA
     Dosage: UNK
     Route: 062
     Dates: start: 20120613, end: 20120615

REACTIONS (1)
  - DRUG INEFFECTIVE [None]
